FAERS Safety Report 6968895-5 (Version None)
Quarter: 2010Q3

REPORT INFORMATION
  Report Type: 
  Country: None (occurrence: None)
  Receive Date: 20100907
  Receipt Date: 20100902
  Transmission Date: 20110219
  Serious: No
  Sender: FDA-Public Use
  Company Number: US-PFIZER INC-2010111952

PATIENT
  Sex: Male

DRUGS (1)
  1. DETROL LA [Suspect]
     Indication: URINARY RETENTION
     Dosage: UNK
     Dates: start: 20100801

REACTIONS (1)
  - DRUG INEFFECTIVE [None]
